FAERS Safety Report 5917432-2 (Version None)
Quarter: 2008Q4

REPORT INFORMATION
  Report Type: 
  Country: None (occurrence: None)
  Receive Date: 20081014
  Receipt Date: 20081007
  Transmission Date: 20090506
  Serious: Yes (Hospitalization)
  Sender: FDA-Public Use
  Company Number: B0541448A

PATIENT
  Age: 39 Year
  Sex: Male
  Weight: 56 kg

DRUGS (4)
  1. KIVEXA [Suspect]
     Indication: HIV INFECTION
     Dosage: 1TAB PER DAY
     Route: 048
     Dates: start: 20080903, end: 20080914
  2. LOPINAVIR [Concomitant]
     Indication: HIV INFECTION
     Route: 048
     Dates: start: 20080903, end: 20080914
  3. RITONAVIR [Concomitant]
     Indication: HIV INFECTION
     Route: 048
     Dates: start: 20080903, end: 20080914
  4. SULFAMETHOXAZOLE AND TRIMETHOPRIM [Concomitant]
     Route: 048
     Dates: start: 20080903, end: 20080914

REACTIONS (5)
  - ARTHRALGIA [None]
  - CHEST PAIN [None]
  - COUGH [None]
  - PYREXIA [None]
  - RASH MACULAR [None]
